FAERS Safety Report 16596657 (Version 3)
Quarter: 2019Q3

REPORT INFORMATION
  Report Type: Spontaneous
  Country: US (occurrence: US)
  Receive Date: 20190719
  Receipt Date: 20190731
  Transmission Date: 20191004
  Serious: No
  Sender: FDA-Public Use
  Company Number: US-JNJFOC-20190726171

PATIENT
  Sex: Female
  Weight: 79.45 kg

DRUGS (1)
  1. WOMENS ROGAINE UNSCENTED [Suspect]
     Active Substance: MINOXIDIL
     Indication: ALOPECIA
     Dosage: HANDFUL EVERYDAY
     Route: 061

REACTIONS (3)
  - Poor quality product administered [Unknown]
  - Product formulation issue [Unknown]
  - Incorrect dose administered [Unknown]
